FAERS Safety Report 20981274 (Version 1)
Quarter: 2022Q2

REPORT INFORMATION
  Report Type: Spontaneous
  Country: US (occurrence: US)
  Receive Date: 20220620
  Receipt Date: 20220620
  Transmission Date: 20220721
  Serious: No
  Sender: FDA-Public Use
  Company Number: US-ASTELLAS-2022US012680

PATIENT
  Sex: Female

DRUGS (1)
  1. VESICARE [Suspect]
     Active Substance: SOLIFENACIN SUCCINATE
     Indication: Product used for unknown indication
     Dosage: 5 MG, ONCE DAILY (STARTED 1 MONTH AGO)
     Route: 065

REACTIONS (3)
  - Balance disorder [Unknown]
  - Memory impairment [Unknown]
  - Confusional state [Unknown]
